FAERS Safety Report 6217171-7 (Version None)
Quarter: 2009Q2

REPORT INFORMATION
  Report Type: 
  Country: None (occurrence: None)
  Receive Date: 20090608
  Receipt Date: 20070322
  Transmission Date: 20091009
  Serious: Yes (Disabling)
  Sender: FDA-Public Use
  Company Number: US-ASTRAZENECA-2006UW08334

PATIENT
  Age: 17135 Day
  Sex: Male

DRUGS (3)
  1. SEROQUEL [Suspect]
     Dosage: 300 MG 1 BID - 300 MG 5 TAB AT NIGHT
     Route: 048
     Dates: start: 20030122
  2. FLUOXETINE HCL [Concomitant]
     Dates: start: 20030123
  3. GEODON [Concomitant]
     Dates: start: 20030123

REACTIONS (2)
  - DIABETES MELLITUS [None]
  - TYPE 2 DIABETES MELLITUS [None]
